FAERS Safety Report 9176215 (Version 1)
Quarter: 2013Q1

REPORT INFORMATION
  Report Type: Spontaneous
  Country: US (occurrence: US)
  Receive Date: 20130321
  Receipt Date: 20130321
  Transmission Date: 20140127
  Serious: No
  Sender: FDA-Public Use
  Company Number: US-009507513-1303USA009345

PATIENT
  Age: 50 Year
  Sex: Female

DRUGS (3)
  1. VICTRELIS [Suspect]
  2. REBETOL [Suspect]
  3. PEG-INTRON [Suspect]

REACTIONS (2)
  - Viral load increased [Unknown]
  - Drug ineffective [Unknown]
